FAERS Safety Report 9303762 (Version 1)
Quarter: 2013Q2

REPORT INFORMATION
  Report Type: Spontaneous
  Country: US (occurrence: US)
  Receive Date: 20130522
  Receipt Date: 20130522
  Transmission Date: 20140414
  Serious: Yes (Death, Hospitalization)
  Sender: FDA-Public Use
  Company Number: US-GLAXOSMITHKLINE-A1023724A

PATIENT
  Sex: Male

DRUGS (3)
  1. ADVAIR [Suspect]
     Indication: ASTHMA
     Route: 055
  2. CHEMOTHERAPY [Concomitant]
  3. PAIN MEDICATIONS [Concomitant]

REACTIONS (1)
  - Colon cancer [Fatal]
